FAERS Safety Report 5005513-X (Version None)
Quarter: 2006Q2

REPORT INFORMATION
  Report Type: 
  Country: None (occurrence: None)
  Receive Date: 20060518
  Receipt Date: 20060510
  Transmission Date: 20061013
  Serious: Yes (Hospitalization)
  Sender: FDA-Public Use
  Company Number: IT-ROCHE-447169

PATIENT
  Age: 57 Year
  Sex: Male

DRUGS (7)
  1. MYCOPHENOLATE MOFETIL [Suspect]
     Route: 048
     Dates: start: 20060115
  2. FK506 [Suspect]
     Route: 048
     Dates: start: 20060115, end: 20060321
  3. FK506 [Suspect]
     Route: 048
     Dates: start: 20060324
  4. ALBUMIN [Concomitant]
  5. BACTRIM [Concomitant]
  6. CIPROFLOXACIN [Concomitant]
  7. INSULIN [Concomitant]

REACTIONS (1)
  - BILE DUCT STENOSIS [None]
